FAERS Safety Report 25605637 (Version 1)
Quarter: 2025Q3

REPORT INFORMATION
  Report Type: Spontaneous
  Country: US (occurrence: US)
  Receive Date: 20250725
  Receipt Date: 20250725
  Transmission Date: 20251020
  Serious: No
  Sender: SANOFI AVENTIS
  Company Number: US-SA-2025SA213066

PATIENT
  Age: 52 Year
  Sex: Female
  Weight: 90.91 kg

DRUGS (6)
  1. DUPIXENT [Suspect]
     Active Substance: DUPILUMAB
     Indication: Dermatitis atopic
     Dosage: 300 MG, QOW
     Route: 058
  2. VUMERITY [Concomitant]
     Active Substance: DIROXIMEL FUMARATE
  3. ASPIRIN [Concomitant]
     Active Substance: ASPIRIN
  4. DIAZEPAM [Concomitant]
     Active Substance: DIAZEPAM
  5. ACETAMINOPHEN\OXYCODONE HYDROCHLORIDE\OXYCODONE TEREPHTHALATE [Concomitant]
     Active Substance: ACETAMINOPHEN\OXYCODONE HYDROCHLORIDE\OXYCODONE TEREPHTHALATE
  6. VITAMIN D3 [Concomitant]
     Active Substance: CHOLECALCIFEROL

REACTIONS (2)
  - Varicella zoster virus infection [Unknown]
  - Malaise [Unknown]

NARRATIVE: CASE EVENT DATE: 20240101
